FAERS Safety Report 11247896 (Version 1)
Quarter: 2015Q3

REPORT INFORMATION
  Report Type: Spontaneous
  Country: FR (occurrence: None)
  Receive Date: 20150706
  Receipt Date: 20150706
  Transmission Date: 20151125
  Serious: Yes (Hospitalization)
  Sender: FDA-Public Use
  Company Number: 2015-001317

PATIENT
  Age: 66 Year
  Sex: Female

DRUGS (11)
  1. BISOPROLOL [Concomitant]
     Active Substance: BISOPROLOL
  2. ACTONEL [Suspect]
     Active Substance: RISEDRONATE SODIUM
     Route: 048
     Dates: start: 2007, end: 2009
  3. BONVIVA [Suspect]
     Active Substance: IBANDRONATE SODIUM
     Dates: start: 2009, end: 2011
  4. ARAVA [Concomitant]
     Active Substance: LEFLUNOMIDE
  5. ENALAPRIL MALEATE W/ LERCANIDIPIN HCL (ENALAPRIL MALEATE, LERCANIDIPINE HYDROCHLORIDE) [Concomitant]
  6. ACLASTA [Suspect]
     Active Substance: ZOLEDRONIC ACID
     Route: 042
     Dates: start: 2012, end: 201312
  7. KARDEGIC [Concomitant]
     Active Substance: ASPIRIN LYSINE
  8. CRESTOR [Concomitant]
     Active Substance: ROSUVASTATIN CALCIUM
  9. INEXIUM /01479302/ (ESOMEPRAZOLE MAGNESIUM) [Concomitant]
  10. ALLOPURINOL. [Concomitant]
     Active Substance: ALLOPURINOL
  11. CORTANCYL (PREDNISONE) [Concomitant]
     Active Substance: PREDNISONE

REACTIONS (2)
  - Osteonecrosis [None]
  - Atypical femur fracture [None]

NARRATIVE: CASE EVENT DATE: 20141130
